FAERS Safety Report 5201156-3 (Version None)
Quarter: 2007Q1

REPORT INFORMATION
  Report Type: 
  Country: None (occurrence: None)
  Receive Date: 20070108
  Receipt Date: 20061226
  Transmission Date: 20070707
  Serious: Yes (Other)
  Sender: FDA-Public Use
  Company Number: US-ELI_LILLY_AND_COMPANY-US200608001528

PATIENT
  Age: 47 Year
  Sex: Female

DRUGS (5)
  1. CYMBALTA [Suspect]
     Dosage: 60 MG, UNK
  2. CYMBALTA [Suspect]
     Dosage: 20 MG, UNK
  3. CYMBALTA [Suspect]
     Dosage: 40 MG, UNK
  4. CYMBALTA [Suspect]
     Dosage: 60 MG, UNK
  5. CLONAZEPAM [Concomitant]

REACTIONS (1)
  - HAEMORRHAGE URINARY TRACT [None]
